FAERS Safety Report 7619226-9 (Version None)
Quarter: 2011Q3

REPORT INFORMATION
  Report Type: 
  Country: None (occurrence: None)
  Receive Date: 20110718
  Receipt Date: 20110714
  Transmission Date: 20111222
  Serious: Yes (Hospitalization, Other)
  Sender: FDA-Public Use
  Company Number: CA-GILEAD-2011-0041827

PATIENT
  Age: 40 Year
  Sex: Female

DRUGS (1)
  1. ATRIPLA [Suspect]
     Indication: HIV INFECTION

REACTIONS (1)
  - ABDOMINAL SEPSIS [None]
